FAERS Safety Report 8840948 (Version 1)
Quarter: 2012Q4

REPORT INFORMATION
  Report Type: 
  Country: US (occurrence: US)
  Receive Date: 20121015
  Receipt Date: 20121015
  Transmission Date: 20130627
  Serious: Yes (Hospitalization, Other)
  Sender: FDA-Public Use
  Company Number: US-TEVA-363760USA

PATIENT
  Age: 37 Year
  Sex: Female

DRUGS (6)
  1. BACLOFEN [Suspect]
     Dates: start: 201208
  2. SAVELLA [Suspect]
     Indication: FIBROMYALGIA
     Dosage: 50 Milligram Daily;
     Route: 048
     Dates: start: 2011, end: 2011
  3. SAVELLA [Suspect]
     Dosage: 50 Milligram Daily;
     Route: 048
     Dates: start: 2011, end: 201208
  4. MELOXICAM [Suspect]
     Dates: start: 201208
  5. CLONIDINE [Concomitant]
     Indication: HYPERTENSION
  6. METOPROLOL [Concomitant]
     Indication: HYPERTENSION

REACTIONS (4)
  - Suicide attempt [Recovered/Resolved]
  - Intentional overdose [Recovered/Resolved]
  - Convulsion [Recovered/Resolved]
  - Depression [Recovered/Resolved]
